FAERS Safety Report 9442936 (Version 1)
Quarter: 2013Q3

REPORT INFORMATION
  Report Type: Spontaneous
  Country: US (occurrence: US)
  Receive Date: 20130806
  Receipt Date: 20130806
  Transmission Date: 20140515
  Serious: Yes (Other)
  Sender: FDA-Public Use
  Company Number: US-009507513-1308USA001877

PATIENT
  Age: 69 Year
  Sex: Female

DRUGS (7)
  1. JANUVIA [Suspect]
     Indication: TYPE 2 DIABETES MELLITUS
     Dosage: 100 MG, QD
     Route: 048
     Dates: start: 20130311, end: 20130801
  2. FOSAMAX [Concomitant]
     Dosage: 70 MG, FREQUENCY: UNSPECIFIED
     Route: 048
  3. LIPITOR [Concomitant]
     Dosage: 40 MG, QD
  4. GLIPIZIDE [Concomitant]
     Dosage: 15 MG, BID
  5. LANTUS [Concomitant]
     Dosage: 15 UNITS, QD
  6. PRINIVIL [Concomitant]
     Dosage: 10 MG, QD
     Route: 048
  7. METFORMIN [Concomitant]
     Dosage: 1000 MG, BID

REACTIONS (1)
  - Pancreatitis [Unknown]
